FAERS Safety Report 6819495-9 (Version None)
Quarter: 2010Q3

REPORT INFORMATION
  Report Type: 
  Country: None (occurrence: None)
  Receive Date: 20100707
  Receipt Date: 20100623
  Transmission Date: 20110219
  Serious: Yes (Hospitalization, Other)
  Sender: FDA-Public Use
  Company Number: PHHY2010MX42036

PATIENT
  Sex: Female

DRUGS (1)
  1. ACLASTA [Suspect]
     Indication: OSTEOPOROSIS
     Dosage: 1 INJECTION (5 MG/100ML) PER YEAR
     Route: 042
     Dates: start: 20090201

REACTIONS (4)
  - ARRHYTHMIA [None]
  - DISLOCATION OF VERTEBRA [None]
  - SYNCOPE [None]
  - VERTEBRA DISLOCATION REDUCTION [None]
